FAERS Safety Report 4840452-6 (Version None)
Quarter: 2005Q4

REPORT INFORMATION
  Report Type: 
  Country: None (occurrence: None)
  Receive Date: 20051129
  Receipt Date: 20051129
  Transmission Date: 20060501
  Serious: Yes (Hospitalization)
  Sender: FDA-Public Use
  Company Number: None

PATIENT
  Age: 52 Year
  Sex: Male
  Weight: 95.2554 kg

DRUGS (1)
  1. REMERON [Suspect]
     Indication: DEPRESSION
     Dosage: 30 MG DAILY PO
     Route: 048
     Dates: start: 20051101, end: 20051120

REACTIONS (8)
  - ABDOMINAL PAIN UPPER [None]
  - ANGER [None]
  - DRUG WITHDRAWAL SYNDROME [None]
  - INCREASED APPETITE [None]
  - IRRITABILITY [None]
  - SUICIDAL IDEATION [None]
  - SYNCOPE [None]
  - WEIGHT INCREASED [None]
